FAERS Safety Report 10159172 (Version 1)
Quarter: 2014Q2

REPORT INFORMATION
  Report Type: Spontaneous
  Country: US (occurrence: None)
  Receive Date: 20140507
  Receipt Date: 20140507
  Transmission Date: 20141212
  Serious: Yes (Hospitalization)
  Sender: FDA-Public Use
  Company Number: None

PATIENT
  Age: 67 Year
  Sex: Male

DRUGS (1)
  1. FENTANYL [Suspect]

REACTIONS (7)
  - Cardiac arrest [None]
  - Hypoxia [None]
  - Paraesthesia [None]
  - Swelling face [None]
  - Skin discolouration [None]
  - Heart rate increased [None]
  - Blood pressure increased [None]
